FAERS Safety Report 8903288 (Version 2)
Quarter: 2013Q1

REPORT INFORMATION
  Report Type: Spontaneous
  Country: US (occurrence: US)
  Receive Date: 20121113
  Receipt Date: 20130220
  Transmission Date: 20140127
  Serious: Yes (Hospitalization)
  Sender: FDA-Public Use
  Company Number: US-INCYTE CORPORATION-2012IN002261

PATIENT
  Age: 78 Year
  Sex: Male

DRUGS (4)
  1. JAKAFI [Suspect]
     Indication: MYELOFIBROSIS
     Dosage: 10 MG, BID
     Route: 048
     Dates: start: 20120227
  2. ANAGRELIDE [Concomitant]
  3. HYDROXYCARBAMIDE [Concomitant]
  4. ASA [Concomitant]
     Dosage: 81 MG, UNK

REACTIONS (2)
  - Concussion [Unknown]
  - Fall [Unknown]
